FAERS Safety Report 5274897-X (Version None)
Quarter: 2007Q1

REPORT INFORMATION
  Report Type: 
  Country: None (occurrence: None)
  Receive Date: 20061208
  Receipt Date: 20060713
  Transmission Date: 20070707
  Serious: No
  Sender: FDA-Public Use
  Company Number: 2006UW14446

PATIENT

DRUGS (1)
  1. CRESTOR [Suspect]

REACTIONS (1)
  - DIABETES MELLITUS [None]
